FAERS Safety Report 5462984-2 (Version None)
Quarter: 2007Q3

REPORT INFORMATION
  Report Type: 
  Country: None (occurrence: None)
  Receive Date: 20070918
  Receipt Date: 20070918
  Transmission Date: 20080115
  Serious: Yes (Life-Threatening, Other)
  Sender: FDA-Public Use
  Company Number: None

PATIENT
  Sex: Male
  Weight: 52.1637 kg

DRUGS (3)
  1. IMITREX [Suspect]
     Indication: MIGRAINE
     Dosage: X1 DOSE INJECTION
     Dates: start: 19920101
  2. ASPIRIN + BUTALBITAL + CAFFEINE + CODEINE TABLETS [Suspect]
     Indication: MIGRAINE
     Dosage: 2 - 6 TABLETS DAILY ORAL
     Route: 048
     Dates: start: 19700101, end: 20070901
  3. LISINOPRIL [Concomitant]

REACTIONS (7)
  - CHEST DISCOMFORT [None]
  - DYSGEUSIA [None]
  - DYSPNOEA [None]
  - ORAL DISCOMFORT [None]
  - PHARMACEUTICAL PRODUCT COMPLAINT [None]
  - POOR QUALITY DRUG ADMINISTERED [None]
  - THROAT TIGHTNESS [None]
